FAERS Safety Report 9255875 (Version 1)
Quarter: 2013Q2

REPORT INFORMATION
  Report Type: Spontaneous
  Country: FR (occurrence: FR)
  Receive Date: 20130425
  Receipt Date: 20130425
  Transmission Date: 20140414
  Serious: Yes (Hospitalization, Other)
  Sender: FDA-Public Use
  Company Number: FR-ELI_LILLY_AND_COMPANY-FR201304005563

PATIENT
  Age: 77 Year
  Sex: Male

DRUGS (12)
  1. UMULINE REGULAR [Suspect]
     Dosage: UNK, UNKNOWN
     Route: 058
  2. KARDEGIC [Concomitant]
     Dosage: 75 MG, UNKNOWN
     Dates: end: 20130128
  3. ASPEGIC [Concomitant]
     Dosage: 1 G, UNKNOWN
     Route: 048
     Dates: start: 20130129
  4. PLAVIX [Concomitant]
     Dosage: 75 MG, UNKNOWN
     Route: 048
  5. TAHOR [Concomitant]
     Dosage: 80 MG, UNKNOWN
     Route: 048
  6. LOXEN [Concomitant]
     Route: 042
  7. LEVANOX [Concomitant]
     Dosage: UNK, UNKNOWN
     Route: 058
  8. LASILIX [Concomitant]
     Dosage: UNK, UNKNOWN
     Route: 042
  9. EUPANTOL [Concomitant]
     Dosage: UNK, UNKNOWN
     Route: 048
  10. TAZOCILLINE [Concomitant]
     Indication: POSTOPERATIVE WOUND INFECTION
     Dosage: UNK
     Dates: start: 20130130
  11. PHLOROGLUCINOL [Concomitant]
     Dosage: UNK, PRN
     Dates: start: 20130129
  12. TRAMADOL [Concomitant]

REACTIONS (10)
  - Rash generalised [Not Recovered/Not Resolved]
  - Pyrexia [Unknown]
  - Eosinophilia [Not Recovered/Not Resolved]
  - Hepatocellular injury [Not Recovered/Not Resolved]
  - Respiratory distress [Unknown]
  - Renal failure [Unknown]
  - Confusional state [Unknown]
  - Somnolence [Unknown]
  - Abdominal pain [Unknown]
  - Serology positive [Unknown]
